FAERS Safety Report 16648569 (Version 1)
Quarter: 2019Q3

REPORT INFORMATION
  Report Type: Spontaneous
  Country: SE (occurrence: SE)
  Receive Date: 20190730
  Receipt Date: 20190730
  Transmission Date: 20191004
  Serious: Yes (Life-Threatening)
  Sender: FDA-Public Use
  Company Number: SE-GLAXOSMITHKLINE-SE2019137124

PATIENT
  Age: 88 Year
  Sex: Female

DRUGS (1)
  1. SCOPODERM TTS [Suspect]
     Active Substance: SCOPOLAMINE
     Indication: PRODUCTIVE COUGH
     Dosage: UNKNOWN
     Route: 065
     Dates: start: 20190620, end: 20190707

REACTIONS (7)
  - Musculoskeletal stiffness [Recovering/Resolving]
  - Dysarthria [Recovering/Resolving]
  - Disorientation [Recovering/Resolving]
  - Asthenia [Recovering/Resolving]
  - Fatigue [Recovering/Resolving]
  - Somnolence [Recovering/Resolving]
  - Paraesthesia [Recovering/Resolving]

NARRATIVE: CASE EVENT DATE: 2019
